FAERS Safety Report 8617111-7 (Version None)
Quarter: 2012Q3

REPORT INFORMATION
  Report Type: 
  Country: None (occurrence: None)
  Receive Date: 20120823
  Receipt Date: 20120816
  Transmission Date: 20120928
  Serious: No
  Sender: FDA-Public Use
  Company Number: US-009507513-1208USA008652

PATIENT

DRUGS (2)
  1. RIBAVIRIN [Suspect]
     Dosage: 600 MG, BID
  2. PEG-INTRON [Suspect]
     Indication: HEPATITIS C
     Dosage: 120 MICROGRAM, QW
     Dates: start: 20120731

REACTIONS (3)
  - FATIGUE [None]
  - LOCALISED INFECTION [None]
  - PAIN IN EXTREMITY [None]
